FAERS Safety Report 9775087 (Version 1)
Quarter: 2013Q4

REPORT INFORMATION
  Report Type: Spontaneous
  Country: US (occurrence: US)
  Receive Date: 20131220
  Receipt Date: 20131220
  Transmission Date: 20140711
  Serious: No
  Sender: FDA-Public Use
  Company Number: US-PFIZER INC-2013361666

PATIENT
  Age: 47 Year
  Sex: Female

DRUGS (6)
  1. TOVIAZ [Suspect]
     Dosage: 4 MG, 1X/DAY
     Route: 048
  2. SUMATRIPTAN SUCCINATE [Suspect]
     Dosage: UNK
  3. ONGLYZA [Suspect]
     Dosage: UNK
  4. DULERA [Suspect]
     Dosage: UNK
  5. INVOKANA [Suspect]
     Dosage: UNK
  6. PAXIL [Suspect]
     Dosage: UNK

REACTIONS (1)
  - Drug hypersensitivity [Unknown]
